FAERS Safety Report 13627099 (Version 1)
Quarter: 2017Q2

REPORT INFORMATION
  Report Type: Spontaneous
  Country: US (occurrence: US)
  Receive Date: 20170531
  Receipt Date: 20170531
  Transmission Date: 20170830
  Serious: Yes (Other)
  Sender: FDA-Public Use
  Company Number: US-ASTELLAS-1458920

PATIENT
  Sex: Female

DRUGS (9)
  1. TARCEVA [Suspect]
     Active Substance: ERLOTINIB HYDROCHLORIDE
     Indication: NEOPLASM MALIGNANT
     Route: 048
     Dates: start: 20130718, end: 20141225
  2. ZOLPIDEM [Concomitant]
     Active Substance: ZOLPIDEM\ZOLPIDEM TARTRATE
     Route: 065
     Dates: start: 20141013
  3. ENOXAPARIN [Concomitant]
     Active Substance: ENOXAPARIN
     Dosage: 40/0.4ML
     Route: 065
  4. MINOCYCLINE [Concomitant]
     Active Substance: MINOCYCLINE\MINOCYCLINE HYDROCHLORIDE
  5. ZOMETA [Concomitant]
     Active Substance: ZOLEDRONIC ACID
     Dosage: 4MG/100
     Route: 065
  6. ARMOUR THYROID [Concomitant]
     Active Substance: THYROID, PORCINE
  7. BENADRYL [Concomitant]
     Active Substance: DIPHENHYDRAMINE HYDROCHLORIDE
     Dosage: AT BED TIME
     Route: 065
  8. NYSTATIN. [Concomitant]
     Active Substance: NYSTATIN
     Dosage: 100,000 U/GM
     Route: 061
     Dates: start: 20141023
  9. MUPIROCIN. [Concomitant]
     Active Substance: MUPIROCIN
     Route: 065
     Dates: start: 20141013

REACTIONS (2)
  - Disease progression [Not Recovered/Not Resolved]
  - Diarrhoea [Unknown]
